FAERS Safety Report 21916467 (Version 1)
Quarter: 2023Q1

REPORT INFORMATION
  Report Type: Spontaneous
  Country: US (occurrence: US)
  Receive Date: 20230126
  Receipt Date: 20230126
  Transmission Date: 20230417
  Serious: Yes (Other)
  Sender: FDA-Public Use
  Company Number: US-PFIZER INC-PV202300015055

PATIENT
  Age: 66 Year
  Sex: Male
  Weight: 87.075 kg

DRUGS (1)
  1. PAXLOVID [Suspect]
     Active Substance: NIRMATRELVIR\RITONAVIR
     Indication: COVID-19 treatment
     Dosage: UNK

REACTIONS (4)
  - Blood pressure increased [Unknown]
  - Heart rate increased [Unknown]
  - Chest discomfort [Unknown]
  - Feeling abnormal [Unknown]
